FAERS Safety Report 6394360-2 (Version None)
Quarter: 2009Q4

REPORT INFORMATION
  Report Type: 
  Country: None (occurrence: None)
  Receive Date: 20091006
  Receipt Date: 20090925
  Transmission Date: 20100525
  Serious: Yes (Hospitalization)
  Sender: FDA-Public Use
  Company Number: 2009AL006318

PATIENT
  Age: 77 Year
  Sex: Female

DRUGS (11)
  1. RAMIPRIL [Suspect]
  2. SORIATANE [Concomitant]
  3. BUFLOMEDIL [Concomitant]
  4. TAHOR [Concomitant]
  5. SELOKEN [Concomitant]
  6. EFFEXOR [Concomitant]
  7. KARDEGIC [Concomitant]
  8. HUMALOG [Concomitant]
  9. HUMAJECT I [Concomitant]
  10. DEXERYL [Concomitant]
  11. ATORVASTATIN CALCIUM [Concomitant]

REACTIONS (6)
  - DERMATOSIS [None]
  - EOSINOPHILIA [None]
  - HAEMOGLOBIN DECREASED [None]
  - SEBORRHOEA [None]
  - SEBORRHOEIC KERATOSIS [None]
  - TOXIC SKIN ERUPTION [None]
